FAERS Safety Report 21484326 (Version 1)
Quarter: 2022Q4

REPORT INFORMATION
  Report Type: Spontaneous
  Country: US (occurrence: US)
  Receive Date: 20221020
  Receipt Date: 20221020
  Transmission Date: 20230112
  Serious: Yes (Other)
  Sender: FDA-Public Use
  Company Number: US-AMGEN-USASP2022180044

PATIENT

DRUGS (2)
  1. INFLIXIMAB [Suspect]
     Active Substance: INFLIXIMAB
     Indication: Iridocyclitis
     Dosage: 10 MILLIGRAM, Q4WK
     Route: 065
  2. ADALIMUMAB [Suspect]
     Active Substance: ADALIMUMAB
     Indication: Iridocyclitis
     Dosage: UNK
     Route: 065

REACTIONS (9)
  - Cataract [Unknown]
  - Glaucoma [Unknown]
  - Cystoid macular oedema [Unknown]
  - Iris adhesions [Unknown]
  - Ocular hypertension [Unknown]
  - Keratopathy [Unknown]
  - Infusion related reaction [Unknown]
  - Drug ineffective for unapproved indication [Unknown]
  - Off label use [Unknown]
